FAERS Safety Report 10150342 (Version 1)
Quarter: 2014Q2

REPORT INFORMATION
  Report Type: Spontaneous
  Country: FR (occurrence: FR)
  Receive Date: 20140502
  Receipt Date: 20140502
  Transmission Date: 20141212
  Serious: Yes (Hospitalization)
  Sender: FDA-Public Use
  Company Number: PHHY2014FR051471

PATIENT
  Age: 33 Year
  Sex: Male

DRUGS (15)
  1. RIMACTAN SANDOZ [Suspect]
     Dosage: 500 MG, BID
     Route: 048
     Dates: start: 20131123, end: 20140115
  2. AUGMENTIN [Suspect]
     Indication: TONSILLITIS
     Dosage: UNK UKN, UNK
     Route: 048
     Dates: start: 20140107, end: 20140113
  3. RIFATER [Suspect]
     Indication: TUBERCULOSIS
     Dosage: 5 DF, QD
     Route: 048
     Dates: start: 20131123, end: 20140115
  4. DEXAMBUTOL [Suspect]
     Indication: TUBERCULOSIS
     Dosage: 500 MG, BID
     Route: 048
     Dates: start: 20131123, end: 20140115
  5. ISENTRESS [Suspect]
     Dosage: 800 MG, BID
     Route: 048
     Dates: start: 20131211, end: 20140115
  6. TRUVADA [Suspect]
     Dosage: 1 DF, QD
     Route: 048
     Dates: start: 20131211, end: 20140115
  7. ATARAX [Concomitant]
     Dosage: 25 MG, BID
     Route: 048
  8. BACTRIM [Concomitant]
     Dosage: 1 DF, QD
     Route: 048
  9. BECILAN [Concomitant]
     Dosage: 250 MG, QD
     Route: 048
  10. DIFFU K [Concomitant]
     Dosage: 1200 MG, TID
     Route: 048
  11. FUNGIZONE [Concomitant]
     Dosage: UNK UKN, UNK
     Route: 048
  12. LOVENOX [Concomitant]
     Dosage: 0.4 ML, QD
     Route: 058
  13. PHOSPHONEUROS [Concomitant]
     Dosage: 100 MG, QD
     Route: 048
  14. ZOPICLONE [Concomitant]
     Dosage: 7.5 MG, QD
     Route: 048
  15. ZYPREXA [Concomitant]
     Dosage: 5 MG, QD
     Route: 048

REACTIONS (1)
  - Drug reaction with eosinophilia and systemic symptoms [Recovering/Resolving]
